FAERS Safety Report 5637894-8 (Version None)
Quarter: 2008Q1

REPORT INFORMATION
  Report Type: 
  Country: None (occurrence: None)
  Receive Date: 20080221
  Receipt Date: 20080221
  Transmission Date: 20080703
  Serious: Yes (Hospitalization)
  Sender: FDA-Public Use
  Company Number: None

PATIENT
  Age: 48 Year
  Sex: Female
  Weight: 120 kg

DRUGS (11)
  1. FOSPHENYTOIN [Suspect]
     Dosage: VARIOUS VARIOUS IV
     Route: 042
     Dates: start: 20071017, end: 20071109
  2. PHENOBARBITAL TAB [Suspect]
     Dosage: VARIOUS VARIOUS IV
     Route: 042
     Dates: start: 20071016, end: 20071109
  3. INSULIN [Concomitant]
  4. FUROSEMIDE [Concomitant]
  5. LEVETIRACETAM [Concomitant]
  6. LANSOPRAZOLE [Concomitant]
  7. ACYCLOVIR [Concomitant]
  8. LORAZEPAM [Concomitant]
  9. PIPERACILLIN [Concomitant]
  10. DOPAMINE HCL [Concomitant]
  11. ERYTHROMYCIN [Concomitant]

REACTIONS (2)
  - ERYTHEMA MULTIFORME [None]
  - STEVENS-JOHNSON SYNDROME [None]
